FAERS Safety Report 4637193-7 (Version None)
Quarter: 2005Q2

REPORT INFORMATION
  Report Type: 
  Country: None (occurrence: None)
  Receive Date: 20050416
  Receipt Date: 20040122
  Transmission Date: 20051028
  Serious: Yes (Hospitalization, Other)
  Sender: FDA-Public Use
  Company Number: PHHO2004DE01296

PATIENT
  Age: 64 Year
  Sex: Male
  Weight: 75 kg

DRUGS (6)
  1. NEORAL [Suspect]
     Indication: RENAL TRANSPLANT
     Dosage: 240 MG / DAY
     Route: 048
     Dates: start: 20031129, end: 20040115
  2. NEORAL [Suspect]
     Dosage: 220 MG / DAY
     Route: 048
     Dates: start: 20040116, end: 20040116
  3. NEORAL [Suspect]
     Dosage: 200 MG / DAY
     Route: 048
     Dates: start: 20040117, end: 20040117
  4. NEORAL [Suspect]
     Dosage: 180 MG / DAY
     Route: 048
     Dates: start: 20040118, end: 20040118
  5. NEORAL [Suspect]
     Dosage: 160 MG / DAY
     Route: 048
     Dates: start: 20040119
  6. FTY720 VS MYCOPHENOLATE MOFETIL [Suspect]
     Indication: RENAL TRANSPLANT
     Dosage: 5 MG, QD
     Route: 048
     Dates: start: 20031129

REACTIONS (6)
  - BLOOD CREATININE INCREASED [None]
  - DEHYDRATION [None]
  - DYSPNOEA [None]
  - HYPERTENSION [None]
  - RETINAL OEDEMA [None]
  - VISUAL ACUITY REDUCED [None]
